FAERS Safety Report 15451587 (Version 2)
Quarter: 2018Q4

REPORT INFORMATION
  Report Type: Spontaneous
  Country: CA (occurrence: CA)
  Receive Date: 20181001
  Receipt Date: 20181119
  Transmission Date: 20190204
  Serious: Yes (Other)
  Sender: FDA-Public Use
  Company Number: CA-GLAXOSMITHKLINE-CA2018GSK157782

PATIENT
  Sex: Female

DRUGS (4)
  1. BENLYSTA [Suspect]
     Active Substance: BELIMUMAB
     Indication: SYSTEMIC LUPUS ERYTHEMATOSUS
     Dosage: 600 MG, UNK
     Route: 042
  2. METHOTREXATE. [Concomitant]
     Active Substance: METHOTREXATE
     Indication: PRODUCT USED FOR UNKNOWN INDICATION
     Dosage: 15 MG, Z,(WEEKLY)
     Route: 048
  3. BENLYSTA [Suspect]
     Active Substance: BELIMUMAB
     Dosage: 600 MG, UNK
  4. BENLYSTA [Suspect]
     Active Substance: BELIMUMAB
     Dosage: 600 MG, UNK
     Route: 042

REACTIONS (7)
  - Systemic lupus erythematosus [Unknown]
  - Pharyngitis [Recovered/Resolved]
  - Rash macular [Unknown]
  - Urticaria [Recovered/Resolved]
  - Skin disorder prophylaxis [Unknown]
  - Arthralgia [Unknown]
  - Headache [Unknown]
